FAERS Safety Report 7382447-7 (Version None)
Quarter: 2011Q1

REPORT INFORMATION
  Report Type: 
  Country: None (occurrence: None)
  Receive Date: 20110329
  Receipt Date: 20110315
  Transmission Date: 20110831
  Serious: Yes (Other)
  Sender: FDA-Public Use
  Company Number: US-BAYER-2011-024061

PATIENT
  Sex: Male
  Weight: 98 kg

DRUGS (1)
  1. NEO-SYNEPHRINOL [Suspect]
     Dosage: UNK UNK, CONT
     Route: 055

REACTIONS (1)
  - DRUG DEPENDENCE [None]
